FAERS Safety Report 13202236 (Version 9)
Quarter: 2021Q3

REPORT INFORMATION
  Report Type: Spontaneous
  Country: US (occurrence: US)
  Receive Date: 20170209
  Receipt Date: 20210719
  Transmission Date: 20211014
  Serious: No
  Sender: FDA-Public Use
  Company Number: US-PFIZER INC-2017056144

PATIENT
  Age: 71 Year
  Sex: Female
  Weight: 108 kg

DRUGS (5)
  1. IBRANCE [Suspect]
     Active Substance: PALBOCICLIB
     Indication: BREAST CANCER METASTATIC
     Dosage: 125 MG, UNK
  2. IBRANCE [Suspect]
     Active Substance: PALBOCICLIB
     Dosage: 75 MG, CYCLIC (DAILY D1?21 EVERY 28 DAYS)
     Route: 048
     Dates: start: 201505
  3. LETROZOLE. [Suspect]
     Active Substance: LETROZOLE
     Indication: BREAST CANCER FEMALE
     Dosage: UNK
  4. IBRANCE [Suspect]
     Active Substance: PALBOCICLIB
     Dosage: 100 MG
  5. LASIX [Concomitant]
     Active Substance: FUROSEMIDE
     Dosage: 40 MG, DAILY
     Route: 048

REACTIONS (34)
  - Headache [Recovering/Resolving]
  - Cough [Unknown]
  - Fluid retention [Unknown]
  - Sinusitis [Recovering/Resolving]
  - Viral infection [Recovering/Resolving]
  - Drug intolerance [Unknown]
  - Nasopharyngitis [Recovering/Resolving]
  - Lacrimation increased [Recovering/Resolving]
  - Illness [Unknown]
  - Nasal congestion [Unknown]
  - Decreased appetite [Unknown]
  - Blood pressure increased [Unknown]
  - Neoplasm recurrence [Unknown]
  - Feeling abnormal [Unknown]
  - Secretion discharge [Not Recovered/Not Resolved]
  - Dyspnoea [Unknown]
  - Rhinorrhoea [Unknown]
  - Hypoacusis [Unknown]
  - Panic attack [Unknown]
  - Dehydration [Recovering/Resolving]
  - Weight decreased [Unknown]
  - Head discomfort [Recovering/Resolving]
  - Haemoptysis [Unknown]
  - Blood uric acid abnormal [Unknown]
  - Asthenia [Unknown]
  - Malaise [Unknown]
  - Ear pain [Not Recovered/Not Resolved]
  - Chills [Unknown]
  - Weight increased [Unknown]
  - Fatigue [Unknown]
  - Somnolence [Unknown]
  - Immune system disorder [Unknown]
  - Upper respiratory tract infection [Unknown]
  - Blood glucose increased [Recovering/Resolving]

NARRATIVE: CASE EVENT DATE: 2015
